FAERS Safety Report 4927883-0 (Version None)
Quarter: 2006Q1

REPORT INFORMATION
  Report Type: 
  Country: None (occurrence: None)
  Receive Date: 20060228
  Receipt Date: 20060209
  Transmission Date: 20060701
  Serious: Yes (Hospitalization)
  Sender: FDA-Public Use
  Company Number: JP-JPN-A200600529

PATIENT
  Age: 58 Year
  Sex: Female
  Weight: 57 kg

DRUGS (3)
  1. VALTREX [Suspect]
     Indication: HERPES ZOSTER
     Dosage: 1000MG THREE TIMES PER DAY
     Route: 048
     Dates: start: 20060206, end: 20060208
  2. LOXONIN [Suspect]
     Indication: HERPES ZOSTER
     Dosage: 60MG PER DAY
     Route: 048
     Dates: start: 20060206, end: 20060208
  3. MUCOSTA [Concomitant]
     Indication: HERPES ZOSTER
     Route: 048
     Dates: start: 20060206, end: 20060208

REACTIONS (3)
  - MALAISE [None]
  - RASH [None]
  - RENAL FAILURE ACUTE [None]
